FAERS Safety Report 7988760 (Version 2)
Quarter: 2012Q4

REPORT INFORMATION
  Report Type: 
  Country: CA (occurrence: CA)
  Receive Date: 20110613
  Receipt Date: 20121102
  Transmission Date: 20130627
  Serious: Yes (Hospitalization, Other)
  Sender: FDA-Public Use
  Company Number: PHHO2005CA08971

PATIENT
  Sex: Female

DRUGS (6)
  1. SANDOSTATIN LAR (PATIENT BASIS) [Suspect]
     Indication: GASTRINOMA
     Dosage: 20 mg, every 4 weeks
     Dates: start: 20040406, end: 20060822
  2. CELEBREX [Concomitant]
  3. PREVACID [Concomitant]
  4. TYLENOL [Concomitant]
  5. TAMOXIFEN [Concomitant]
  6. SANDOSTATIN [Concomitant]
     Dosage: UNK UKN, TID
     Route: 058
     Dates: start: 20060828, end: 20061009

REACTIONS (17)
  - Abdominal pain upper [Unknown]
  - Pulmonary mass [Unknown]
  - Synovial cyst [Unknown]
  - Lung abscess [Unknown]
  - Pyrexia [Unknown]
  - Blood pressure decreased [Unknown]
  - Injection site phlebitis [Unknown]
  - Family stress [Unknown]
  - Erythema [Unknown]
  - Injection site reaction [Unknown]
  - Pruritus [Unknown]
  - Abdominal discomfort [Unknown]
  - Pruritus generalised [Unknown]
  - Injection site pain [Unknown]
  - Blood glucose increased [Unknown]
  - Dyspnoea [Unknown]
  - Heart rate increased [Unknown]
